FAERS Safety Report 8984210 (Version 3)
Quarter: 2013Q2

REPORT INFORMATION
  Report Type: Spontaneous
  Country: FR (occurrence: FR)
  Receive Date: 20121226
  Receipt Date: 20130626
  Transmission Date: 20140414
  Serious: Yes (Death, Hospitalization, Other)
  Sender: FDA-Public Use
  Company Number: FR-PFIZER INC-2012325404

PATIENT
  Age: 68 Year
  Sex: Female
  Weight: 70 kg

DRUGS (6)
  1. EFFEXOR LP [Suspect]
     Indication: DEPRESSION
     Dosage: 75 MG, DAILY
     Dates: start: 20120707
  2. EFFEXOR LP [Suspect]
     Dosage: 37.5 MG, DAILY
     Dates: start: 20120719, end: 20120804
  3. AMLOR [Concomitant]
     Indication: HYPERTENSION
     Dosage: 1 DF, DAILY
     Dates: start: 20120718
  4. TEMESTA [Concomitant]
     Indication: ANXIETY
     Dosage: 5 MG, 1X/DAY
     Dates: start: 20120718
  5. HALDOL [Concomitant]
     Indication: AGITATION
     Dosage: 15 DROPS, 1X/DAY
  6. IMOVANE [Concomitant]
     Indication: INSOMNIA
     Dosage: 1 DF, 1X/DAY
     Dates: start: 20120716

REACTIONS (21)
  - Pneumonia aspiration [Fatal]
  - Neuroleptic malignant syndrome [Unknown]
  - Mutism [Unknown]
  - Cardiac arrest [Recovered/Resolved]
  - Respiratory distress [Unknown]
  - Circulatory collapse [Unknown]
  - Renal failure [Unknown]
  - Paralysis [Unknown]
  - Aspiration [Unknown]
  - Gait disturbance [Unknown]
  - Restlessness [Unknown]
  - Muscle rigidity [Unknown]
  - Hypoglycaemia [Unknown]
  - Delusion [Unknown]
  - Oligodipsia [Unknown]
  - Constipation [Unknown]
  - Asthenia [Unknown]
  - Activities of daily living impaired [Unknown]
  - Joint stiffness [Unknown]
  - Dysphagia [Unknown]
  - Somnolence [Unknown]
